FAERS Safety Report 8311623-1 (Version None)
Quarter: 2012Q2

REPORT INFORMATION
  Report Type: 
  Country: None (occurrence: None)
  Receive Date: 20120425
  Receipt Date: 20120417
  Transmission Date: 20120825
  Serious: Yes (Hospitalization)
  Sender: FDA-Public Use
  Company Number: JP-EISAI INC-E2020-10658-SPO-JP

PATIENT
  Age: 62 Year
  Sex: Male

DRUGS (2)
  1. ARICEPT [Suspect]
     Route: 048
     Dates: start: 20120410, end: 20120414
  2. RISPERDAL [Concomitant]
     Dosage: UNKNOWN

REACTIONS (2)
  - LEUKOPENIA [None]
  - PNEUMONIA [None]
